FAERS Safety Report 4586420-3 (Version None)
Quarter: 2005Q1

REPORT INFORMATION
  Report Type: 
  Country: None (occurrence: None)
  Receive Date: 20050218
  Receipt Date: 20050204
  Transmission Date: 20050727
  Serious: Yes (Other)
  Sender: FDA-Public Use
  Company Number: PHHO2005CA02278

PATIENT
  Age: 38 Year
  Sex: Male

DRUGS (6)
  1. CLOZARIL [Suspect]
     Dosage: 200 MG/BID + 200 MG HS
     Route: 048
     Dates: start: 20041127, end: 20041228
  2. XANAX [Concomitant]
  3. CELEXA [Concomitant]
  4. ZYPREXA [Concomitant]
  5. WELLBUTRIN SR [Concomitant]
  6. KEMADRIN [Concomitant]

REACTIONS (2)
  - HEPATIC FUNCTION ABNORMAL [None]
  - PSYCHOMOTOR RETARDATION [None]
